FAERS Safety Report 8117131-5 (Version None)
Quarter: 2012Q1

REPORT INFORMATION
  Report Type: 
  Country: None (occurrence: None)
  Receive Date: 20120206
  Receipt Date: 20120202
  Transmission Date: 20120608
  Serious: Yes (Death)
  Sender: FDA-Public Use
  Company Number: DE-ASTRAZENECA-2009SE19974

PATIENT
  Age: 36 Year
  Sex: Female
  Weight: 70 kg

DRUGS (8)
  1. FENTANYL CITRATE [Concomitant]
     Indication: SEDATION
  2. MANNITOL [Concomitant]
     Indication: BLOOD OSMOLARITY
  3. PROPOFOL [Suspect]
     Indication: SEDATION
     Dosage: MAXIMUM INDIVIDUAL DOSE: 2.8 MG/KG/HOUR
     Route: 042
     Dates: start: 20090814, end: 20090820
  4. KETAMINE HCL [Concomitant]
     Indication: SEDATION
  5. NOREPINEPHRINE BITARTRATE [Concomitant]
     Dosage: UP TO 1.6 MG/HR
  6. NOREPINEPHRINE BITARTRATE [Concomitant]
     Dosage: UP TO 0.8 MG/HR
  7. MIDAZOLAM [Concomitant]
     Indication: SEDATION
  8. METHOHEXITAL [Concomitant]

REACTIONS (1)
  - PROPOFOL INFUSION SYNDROME [None]
